FAERS Safety Report 9802427 (Version 2)
Quarter: 2014Q1

REPORT INFORMATION
  Report Type: Spontaneous
  Country: US (occurrence: US)
  Receive Date: 20140107
  Receipt Date: 20140212
  Transmission Date: 20141002
  Serious: No
  Sender: FDA-Public Use
  Company Number: US-009507513-1401USA001928

PATIENT
  Age: 74 Year
  Sex: Female
  Weight: 132.43 kg

DRUGS (5)
  1. OXYTROL FOR WOMEN [Suspect]
     Indication: INCONTINENCE
     Dosage: 1 DF, Q4D
     Route: 062
     Dates: start: 20131218, end: 20140106
  2. LEVOTHYROXINE SODIUM [Concomitant]
     Indication: THYROID DISORDER
     Dosage: UNK, UNKNOWN
  3. METOPROLOL [Concomitant]
     Indication: HYPERTENSION
     Dosage: 75 MICROGRAM, UNKNOWN
  4. OMEPRAZOLE [Concomitant]
     Indication: GASTROOESOPHAGEAL REFLUX DISEASE
     Dosage: 20 MG, UNKNOWN
  5. OXYBUTIN [Concomitant]
     Indication: INCONTINENCE
     Dosage: 5 MG, QD

REACTIONS (2)
  - Pollakiuria [Unknown]
  - Drug ineffective [Unknown]
